FAERS Safety Report 20877629 (Version 1)
Quarter: 2022Q2

REPORT INFORMATION
  Report Type: Spontaneous
  Country: US (occurrence: None)
  Receive Date: 20220525
  Receipt Date: 20220525
  Transmission Date: 20220721
  Serious: Yes (Life-Threatening, Hospitalization)
  Sender: FDA-Public Use
  Company Number: None

PATIENT
  Age: 67 Year
  Sex: Male

DRUGS (1)
  1. LUMASON [Suspect]
     Active Substance: SULFUR HEXAFLUORIDE
     Indication: Ultrasound scan
     Route: 042

REACTIONS (15)
  - Adverse event [None]
  - Procedural complication [None]
  - Hyperhidrosis [None]
  - Dizziness [None]
  - Dizziness [None]
  - Nausea [None]
  - Palpitations [None]
  - Loss of consciousness [None]
  - Paraesthesia [None]
  - Muscle rigidity [None]
  - Heart rate increased [None]
  - Hypersensitivity [None]
  - Hypotension [None]
  - Coronary artery disease [None]
  - Acute myocardial infarction [None]

NARRATIVE: CASE EVENT DATE: 20210702
